FAERS Safety Report 16706595 (Version 1)
Quarter: 2019Q3

REPORT INFORMATION
  Report Type: Spontaneous
  Country: US (occurrence: US)
  Receive Date: 20190815
  Receipt Date: 20190815
  Transmission Date: 20191004
  Serious: No
  Sender: FDA-Public Use
  Company Number: US-PACIRA-201600062

PATIENT
  Sex: Female
  Weight: 86 kg

DRUGS (2)
  1. ROPIVACAINE. [Suspect]
     Active Substance: ROPIVACAINE HYDROCHLORIDE
     Indication: NERVE BLOCK
     Dosage: 50 CC (25 CC EACH SIDE)
     Dates: start: 20160426, end: 20160426
  2. EXPAREL [Suspect]
     Active Substance: BUPIVACAINE
     Indication: POSTOPERATIVE ANALGESIA
     Dosage: 24 ML, 1X (20ML FROM ONE VIAL, 4 ML FROM A SECOND VIAL), FREQUENCY : 1X
     Dates: start: 20160426, end: 20160426

REACTIONS (2)
  - Hypotension [Unknown]
  - Extra dose administered [Unknown]

NARRATIVE: CASE EVENT DATE: 20160426
